FAERS Safety Report 24552232 (Version 1)
Quarter: 2024Q4

REPORT INFORMATION
  Report Type: Other
  Country: US (occurrence: US)
  Receive Date: 20241026
  Receipt Date: 20241026
  Transmission Date: 20250115
  Serious: Yes (Hospitalization, Other)
  Sender: BIONPHARMA INC.
  Company Number: US-Bion-014122

PATIENT
  Age: 73 Year
  Sex: Female

DRUGS (1)
  1. LOPERAMIDE HYDROCHLORIDE [Suspect]
     Active Substance: LOPERAMIDE HYDROCHLORIDE
     Indication: Diarrhoea
     Dosage: 2MG
     Route: 048

REACTIONS (1)
  - Reversible cerebral vasoconstriction syndrome [Recovered/Resolved]
